FAERS Safety Report 5268904-8 (Version None)
Quarter: 2007Q1

REPORT INFORMATION
  Report Type: 
  Country: None (occurrence: None)
  Receive Date: 20070319
  Receipt Date: 20070307
  Transmission Date: 20070707
  Serious: Yes (Death)
  Sender: FDA-Public Use
  Company Number: SE-JNJFOC-20070303607

PATIENT
  Sex: Female

DRUGS (3)
  1. CAELYX [Suspect]
     Indication: BREAST CANCER
     Route: 042
  2. ATENOLOL [Concomitant]
     Indication: ARRHYTHMIA
     Route: 048
  3. ACETYLSALICYLIC ACID SRT [Concomitant]
     Indication: ARRHYTHMIA
     Route: 048

REACTIONS (2)
  - ALVEOLITIS FIBROSING [None]
  - DEATH [None]
